FAERS Safety Report 11577704 (Version 1)
Quarter: 2015Q3

REPORT INFORMATION
  Report Type: Spontaneous
  Country: US (occurrence: US)
  Receive Date: 20150930
  Receipt Date: 20150930
  Transmission Date: 20151125
  Serious: Yes (Other)
  Sender: FDA-Public Use
  Company Number: US-BRACCO-012734

PATIENT
  Age: 68 Year
  Sex: Female

DRUGS (4)
  1. NORMAL SALINE [Concomitant]
     Active Substance: SODIUM CHLORIDE
     Route: 014
     Dates: start: 20150825, end: 20150825
  2. ISOVUE 300 [Suspect]
     Active Substance: IOPAMIDOL
     Indication: ARTHROGRAM
     Route: 014
     Dates: start: 20150825, end: 20150825
  3. HYALGAN [Concomitant]
     Active Substance: HYALURONATE SODIUM
     Indication: OSTEOARTHRITIS
     Dosage: TOTAL OF 5 INJECTIONS
     Dates: start: 2015, end: 20150526
  4. HYALGAN [Concomitant]
     Active Substance: HYALURONATE SODIUM
     Indication: ARTHRALGIA
     Dosage: TOTAL OF 5 INJECTIONS
     Dates: start: 2015, end: 20150526

REACTIONS (1)
  - Arthritis [Recovered/Resolved]

NARRATIVE: CASE EVENT DATE: 20150825
